FAERS Safety Report 4290214-6 (Version None)
Quarter: 2004Q1

REPORT INFORMATION
  Report Type: 
  Country: None (occurrence: None)
  Receive Date: 20040210
  Receipt Date: 20040203
  Transmission Date: 20041129
  Serious: Yes (Death, Other)
  Sender: FDA-Public Use
  Company Number: PHEH2004US01560

PATIENT
  Age: 4 Day
  Sex: Female
  Weight: 2 kg

DRUGS (5)
  1. TEGRETOL [Suspect]
     Route: 064
  2. LEXAPRO [Concomitant]
     Route: 064
  3. TYLENOL W/ CODEINE [Concomitant]
     Route: 064
  4. FOLIC ACID [Concomitant]
     Route: 064
  5. PRENATAL VITAMINS [Concomitant]

REACTIONS (2)
  - DEATH NEONATAL [None]
  - DRUG EXPOSURE DURING PREGNANCY [None]
